FAERS Safety Report 5215171-7 (Version None)
Quarter: 2007Q1

REPORT INFORMATION
  Report Type: 
  Country: None (occurrence: None)
  Receive Date: 20070117
  Receipt Date: 20070108
  Transmission Date: 20070707
  Serious: Yes (Death, Hospitalization, Disabling)
  Sender: FDA-Public Use
  Company Number: TAP2006Q00263

PATIENT
  Age: 82 Year
  Sex: Male

DRUGS (9)
  1. LUPRON DEPOT-4 [Suspect]
     Indication: PROSTATE CANCER
     Dosage: 30 MG, 1 IN 4 M, INTRAMUSCULAR
     Route: 030
     Dates: start: 20051031, end: 20061023
  2. SPIRIVA PUFFER (TIOTROPIUM BROMIDE) [Concomitant]
  3. ACCUPRIL [Concomitant]
  4. ADVAIR INHALER (SERETIDE/01420901/) [Concomitant]
  5. ARICEPT [Concomitant]
  6. COLACE (DOCUSATE SODIUM) [Concomitant]
  7. LASIX [Concomitant]
  8. METOPROLOL TARTRATE [Concomitant]
  9. NOVARSEN [Concomitant]

REACTIONS (5)
  - BLOOD GLUCOSE INCREASED [None]
  - CEREBROVASCULAR ACCIDENT [None]
  - DECUBITUS ULCER [None]
  - DYSPHAGIA [None]
  - INFECTION [None]
